FAERS Safety Report 8630547 (Version 4)
Quarter: 2013Q3

REPORT INFORMATION
  Report Type: Spontaneous
  Country: DK (occurrence: DK)
  Receive Date: 20120622
  Receipt Date: 20130813
  Transmission Date: 20140515
  Serious: Yes (Disabling)
  Sender: FDA-Public Use
  Company Number: DK-PFIZER INC-2012140957

PATIENT
  Age: 38 Year
  Sex: Female

DRUGS (9)
  1. FARMORUBICIN [Suspect]
     Indication: BREAST CANCER
     Dosage: 161 MG, UNK
     Route: 042
     Dates: start: 20081006
  2. FARMORUBICIN [Suspect]
     Dosage: 161 MG, UNK
     Route: 042
     Dates: start: 20081027
  3. FARMORUBICIN [Suspect]
     Dosage: 161 MG, UNK
     Route: 042
     Dates: start: 20081117
  4. CYCLOPHOSPHAMIDE [Concomitant]
     Indication: BREAST CANCER
     Dosage: 1074 MG, UNK
     Route: 042
     Dates: start: 20081006
  5. CYCLOPHOSPHAMIDE [Concomitant]
     Dosage: 1074 MG, UNK
     Dates: start: 20081027
  6. CYCLOPHOSPHAMIDE [Concomitant]
     Dosage: 1074 MG, UNK
     Dates: start: 20081117
  7. TAXOTERE [Concomitant]
     Indication: BREAST CANCER
     Dosage: 184 MG, UNK
     Route: 042
     Dates: start: 20081208
  8. TAXOTERE [Concomitant]
     Dosage: 184 MG, UNK
     Dates: start: 20081229
  9. TAXOTERE [Concomitant]
     Dosage: 184 MG, UNK
     Route: 042
     Dates: start: 20090119

REACTIONS (3)
  - Cardiac failure [Recovered/Resolved]
  - Dyspnoea [Recovered/Resolved]
  - Pulmonary function test decreased [Recovered/Resolved]
